FAERS Safety Report 14765512 (Version 2)
Quarter: 2018Q2

REPORT INFORMATION
  Report Type: Report from Study
  Country: ES (occurrence: ES)
  Receive Date: 20180416
  Receipt Date: 20180418
  Transmission Date: 20180711
  Serious: Yes (Life-Threatening, Hospitalization)
  Sender: FDA-Public Use
  Company Number: ES-PFIZER INC-2018149000

PATIENT
  Age: 37 Year
  Sex: Female

DRUGS (5)
  1. VINCRISTINE [Suspect]
     Active Substance: VINCRISTINE
     Indication: NON-HODGKIN^S LYMPHOMA
     Dosage: 2 MG, CYCLIC (CYCLIC ADMINISTRATION IN DAY 1 OF CYCLE UNTIL COMPLETION OF 6 CYCLES )
     Dates: start: 20150317, end: 201506
  2. DOXORUBICIN HCL [Suspect]
     Active Substance: DOXORUBICIN HYDROCHLORIDE
     Indication: NON-HODGKIN^S LYMPHOMA
     Dosage: IRREGULAR DOSE, CYCLIC ADMINISTRATION ON DAY 1 OF CYCLE UNTIL COMPLETION OF 6
     Route: 042
     Dates: start: 20150317, end: 201506
  3. CYCLOPHOSPHAMIDE. [Suspect]
     Active Substance: CYCLOPHOSPHAMIDE
     Indication: NON-HODGKIN^S LYMPHOMA
     Dosage: AT IRREGULAR DOSE CYCLIC ADMINISTRATION ON DAY 1 OF CYCLE UNTIL COMPLETION OF 6
     Route: 042
     Dates: start: 20150317, end: 201506
  4. PREDNISONE. [Suspect]
     Active Substance: PREDNISONE
     Dosage: IRREGULAR DOSE CYCLIC ADMINISTRATION ON DAY 1 OF CYCLE UNTIL COMPLETION OF 6
     Route: 042
     Dates: start: 20150317, end: 201506
  5. ETOPOSIDE. [Suspect]
     Active Substance: ETOPOSIDE
     Indication: NON-HODGKIN^S LYMPHOMA
     Dosage: IRREGULAR DOSE CYCLIC ADMINISTRATION ON DAY 1 TO 3 OF CYCLE UNTIL COMPLETION OF 6 CYC
     Route: 042
     Dates: start: 20150317, end: 201506

REACTIONS (2)
  - Second primary malignancy [Recovered/Resolved]
  - Refractory anaemia with an excess of blasts [Recovered/Resolved]

NARRATIVE: CASE EVENT DATE: 20170104
